FAERS Safety Report 10451555 (Version 8)
Quarter: 2017Q2

REPORT INFORMATION
  Report Type: Spontaneous
  Country: US (occurrence: US)
  Receive Date: 20140914
  Receipt Date: 20170525
  Transmission Date: 20170829
  Serious: No
  Sender: FDA-Public Use
  Company Number: US-009507513-1409USA003089

PATIENT
  Age: 44 Year
  Sex: Female
  Weight: 70.3 kg

DRUGS (3)
  1. NUVARING [Suspect]
     Active Substance: ETHINYL ESTRADIOL\ETONOGESTREL
     Indication: CONTRACEPTION
     Dosage: 1 RING, 3 WEEKS /1 WEEK OUT (ALSO REPORTED AS ^1 WEEK IN/3 WEEKS OUT^)
     Route: 067
     Dates: start: 2005
  2. ALAVERT ALLERGY [Concomitant]
     Active Substance: LORATADINE
     Dosage: UNK
  3. NUVARING [Suspect]
     Active Substance: ETHINYL ESTRADIOL\ETONOGESTREL
     Dosage: 1 RING, 28 DAYS INSERTED
     Route: 067

REACTIONS (13)
  - Vaginal cyst [Unknown]
  - Abdominal pain lower [Unknown]
  - Medical device discomfort [Unknown]
  - Abdominal pain [Unknown]
  - Incorrect drug administration duration [Unknown]
  - Blood cholesterol increased [Unknown]
  - Discomfort [Unknown]
  - Pain [Unknown]
  - Vaginal haemorrhage [Unknown]
  - Sensation of foreign body [Unknown]
  - Abdominal distension [Unknown]
  - Feeling abnormal [Unknown]
  - Migraine [Not Recovered/Not Resolved]

NARRATIVE: CASE EVENT DATE: 2005
